FAERS Safety Report 22606584 (Version 1)
Quarter: 2023Q2

REPORT INFORMATION
  Report Type: Spontaneous
  Country: IT (occurrence: IT)
  Receive Date: 20230615
  Receipt Date: 20230615
  Transmission Date: 20230721
  Serious: Yes (Other)
  Sender: FDA-Public Use
  Company Number: IT-MYLANLABS-2023M1062976

PATIENT
  Age: 44 Year
  Sex: Female

DRUGS (2)
  1. ACETAMINOPHEN [Suspect]
     Active Substance: ACETAMINOPHEN
     Indication: Analgesic therapy
     Dosage: 2 GRAM, QD
     Route: 065
  2. MORPHINE [Suspect]
     Active Substance: MORPHINE
     Indication: Analgesic therapy
     Dosage: 30 MILLIGRAM, BID
     Route: 065

REACTIONS (1)
  - Drug ineffective [Unknown]
